FAERS Safety Report 16742479 (Version 2)
Quarter: 2020Q3

REPORT INFORMATION
  Report Type: Spontaneous
  Country: US (occurrence: US)
  Receive Date: 20190826
  Receipt Date: 20200727
  Transmission Date: 20201102
  Serious: Yes (Other)
  Sender: FDA-Public Use
  Company Number: US-ELI_LILLY_AND_COMPANY-US201908006642

PATIENT
  Age: 51 Year
  Sex: Male
  Weight: 146 kg

DRUGS (9)
  1. ZESTRIL [Concomitant]
     Active Substance: LISINOPRIL
     Indication: PRODUCT USED FOR UNKNOWN INDICATION
     Dosage: 10 MG, DAILY
     Route: 048
  2. ASPIRIN. [Concomitant]
     Active Substance: ASPIRIN
     Indication: PRODUCT USED FOR UNKNOWN INDICATION
     Dosage: 81 MG, DAILY
     Route: 048
  3. XOPENEX [Concomitant]
     Active Substance: LEVALBUTEROL HYDROCHLORIDE
     Indication: DYSPNOEA
     Dosage: UNK, QID PRN
  4. ATENOLOL. [Concomitant]
     Active Substance: ATENOLOL
     Indication: PRODUCT USED FOR UNKNOWN INDICATION
     Dosage: 50 MG, DAILY
     Route: 048
  5. LASIX [Concomitant]
     Active Substance: FUROSEMIDE
     Indication: PRODUCT USED FOR UNKNOWN INDICATION
     Dosage: 40 MG, EACH MORNING (QAM)
     Route: 048
  6. CYMBALTA [Suspect]
     Active Substance: DULOXETINE HYDROCHLORIDE
     Indication: PRODUCT USED FOR UNKNOWN INDICATION
     Dosage: 30 MG, DAILY
     Route: 048
  7. PRAVACHOL [Concomitant]
     Active Substance: PRAVASTATIN SODIUM
     Indication: PRODUCT USED FOR UNKNOWN INDICATION
     Dosage: 20 MG, EACH EVENING (QHS)
     Route: 048
  8. KCL [Concomitant]
     Active Substance: POTASSIUM CHLORIDE
     Indication: PRODUCT USED FOR UNKNOWN INDICATION
     Dosage: 10 MEQ, EACH MORNING
     Route: 048
  9. QVAR [Concomitant]
     Active Substance: BECLOMETHASONE DIPROPIONATE
     Indication: PRODUCT USED FOR UNKNOWN INDICATION
     Dosage: UNK UNK, BID

REACTIONS (22)
  - Dysuria [Unknown]
  - Palpitations [Unknown]
  - Amnesia [Unknown]
  - Hepatitis C antibody positive [Unknown]
  - Irritability [Unknown]
  - Headache [Unknown]
  - Nausea [Unknown]
  - Depression [Unknown]
  - Mood swings [Unknown]
  - Anxiety [Unknown]
  - Suicidal ideation [Unknown]
  - Sleep disorder [Unknown]
  - Dizziness [Unknown]
  - Paraesthesia [Unknown]
  - Vertigo [Unknown]
  - Hepatitis A antibody positive [Unknown]
  - Withdrawal syndrome [Unknown]
  - Tinea pedis [Unknown]
  - Agitation [Unknown]
  - Hyperhidrosis [Unknown]
  - Nightmare [Unknown]
  - Blood albumin decreased [Unknown]

NARRATIVE: CASE EVENT DATE: 20180726
